FAERS Safety Report 4353973-X (Version None)
Quarter: 2004Q2

REPORT INFORMATION
  Report Type: 
  Country: None (occurrence: None)
  Receive Date: 20040506
  Receipt Date: 20040301
  Transmission Date: 20050107
  Serious: No
  Sender: FDA-Public Use
  Company Number: US-GLAXOSMITHKLINE-A0500692A

PATIENT
  Age: 60 Year
  Sex: Male

DRUGS (6)
  1. AVANDAMET [Suspect]
     Route: 048
  2. NEXIUM [Concomitant]
  3. FOSAMAX [Concomitant]
  4. ZOLOFT [Concomitant]
  5. DETROL LA [Concomitant]
  6. MULTI-VITAMIN [Concomitant]

REACTIONS (3)
  - DIARRHOEA [None]
  - ERUCTATION [None]
  - FLATULENCE [None]
